FAERS Safety Report 5537777-8 (Version None)
Quarter: 2007Q4

REPORT INFORMATION
  Report Type: 
  Country: None (occurrence: None)
  Receive Date: 20071207
  Receipt Date: 20071126
  Transmission Date: 20080405
  Serious: Yes (Other)
  Sender: FDA-Public Use
  Company Number: US-PFIZER INC-2007100003

PATIENT
  Sex: Female
  Weight: 63.5 kg

DRUGS (3)
  1. LYRICA [Suspect]
     Indication: FIBROMYALGIA
  2. OTHER NERVOUS SYSTEM DRUGS [Suspect]
     Indication: FIBROMYALGIA
  3. LEXAPRO [Suspect]

REACTIONS (4)
  - FEELING ABNORMAL [None]
  - IMPAIRED WORK ABILITY [None]
  - NAUSEA [None]
  - THINKING ABNORMAL [None]
